FAERS Safety Report 9912495 (Version 2)
Quarter: 2014Q1

REPORT INFORMATION
  Report Type: Spontaneous
  Country: US (occurrence: US)
  Receive Date: 20140220
  Receipt Date: 20140220
  Transmission Date: 20141002
  Serious: Yes (Death)
  Sender: FDA-Public Use
  Company Number: US-BRISTOL-MYERS SQUIBB COMPANY-19548767

PATIENT
  Age: 76 Year
  Sex: Female

DRUGS (14)
  1. BYETTA [Suspect]
     Indication: TYPE 2 DIABETES MELLITUS
     Dates: start: 20061114
  2. JANUVIA [Suspect]
     Indication: TYPE 2 DIABETES MELLITUS
     Route: 048
     Dates: start: 20080831, end: 201109
  3. ATORVASTATIN [Concomitant]
     Route: 048
  4. CHLORTHALIDONE [Concomitant]
     Dosage: CHLORTHALIDONE 25 MG ORAL TABLET) 0.5 TABLET BY MOUTH EVERY DAY
     Route: 048
  5. CHOLECALCIFEROL [Concomitant]
     Route: 048
  6. FENTANYL [Concomitant]
  7. LANTUS [Concomitant]
     Dosage: 25 UNITS
     Route: 058
  8. LEVOTHYROXINE [Concomitant]
  9. GLUMETZA [Concomitant]
     Route: 048
  10. METOPROLOL SUCCINATE [Concomitant]
     Route: 048
  11. OMEPRAZOLE [Concomitant]
     Route: 048
  12. OXYCODONE [Concomitant]
     Route: 048
  13. CARAFATE [Concomitant]
     Dosage: 10 GM 1/2 HOUR BEFORE MEALS
  14. DIOVAN [Concomitant]
     Route: 048

REACTIONS (1)
  - Pancreatic carcinoma [Fatal]
